FAERS Safety Report 8962936 (Version 1)
Quarter: 2012Q4

REPORT INFORMATION
  Report Type: 
  Country: US (occurrence: US)
  Receive Date: 20121213
  Receipt Date: 20121213
  Transmission Date: 20130627
  Serious: Yes (Other)
  Sender: FDA-Public Use
  Company Number: US-MYLANLABS-2012S1025115

PATIENT
  Age: 40 Year
  Sex: Male
  Weight: 90.72 kg

DRUGS (4)
  1. BUPROPION HYDROCHLORIDE [Suspect]
     Indication: DEPRESSION
     Route: 048
     Dates: start: 2009
  2. KLONOPIN [Concomitant]
     Indication: DEPRESSION
     Route: 048
     Dates: start: 2009
  3. CELEXA [Concomitant]
     Indication: DEPRESSION
     Route: 048
     Dates: start: 2009
  4. HYDROXYZINE [Concomitant]
     Indication: ANXIETY
     Dosage: tid prn
     Route: 048
     Dates: start: 201207

REACTIONS (3)
  - Grand mal convulsion [Recovered/Resolved]
  - Wrong technique in drug usage process [Not Recovered/Not Resolved]
  - Fall [None]
